FAERS Safety Report 6577758-9 (Version None)
Quarter: 2010Q1

REPORT INFORMATION
  Report Type: 
  Country: None (occurrence: None)
  Receive Date: 20100211
  Receipt Date: 20100127
  Transmission Date: 20100710
  Serious: Yes (Hospitalization, Other)
  Sender: FDA-Public Use
  Company Number: JP-ROCHE-558883

PATIENT
  Sex: Female
  Weight: 52 kg

DRUGS (36)
  1. TRASTUZUMAB [Suspect]
     Indication: BREAST CANCER METASTATIC
     Dosage: DOSE DECREASED.
     Route: 041
     Dates: start: 20070329, end: 20070329
  2. TRASTUZUMAB [Suspect]
     Route: 041
     Dates: start: 20070405, end: 20080703
  3. TRASTUZUMAB [Suspect]
     Route: 041
     Dates: start: 20080710, end: 20080821
  4. TRASTUZUMAB [Suspect]
     Route: 041
     Dates: start: 20080904, end: 20090108
  5. TRASTUZUMAB [Suspect]
     Route: 041
     Dates: start: 20090122, end: 20090722
  6. TRASTUZUMAB [Suspect]
     Route: 041
     Dates: start: 20090805, end: 20091028
  7. TRASTUZUMAB [Suspect]
     Route: 041
     Dates: start: 20091118, end: 20091209
  8. TAXOTERE [Suspect]
     Indication: BREAST CANCER METASTATIC
     Route: 041
     Dates: start: 20070329, end: 20070410
  9. TAXOTERE [Suspect]
     Route: 041
     Dates: start: 20070508, end: 20081002
  10. SEPAZON [Suspect]
     Indication: DEPRESSION
     Route: 048
  11. TAGAMET [Suspect]
     Indication: GASTRIC ULCER
     Route: 048
     Dates: end: 20081004
  12. TAGAMET [Suspect]
     Route: 048
  13. CARDENALIN [Suspect]
     Indication: HYPERTENSION
     Route: 048
     Dates: end: 20081004
  14. CARDENALIN [Suspect]
     Route: 048
  15. NORVASC [Suspect]
     Indication: HYPERTENSION
     Route: 048
     Dates: end: 20081004
  16. NORVASC [Suspect]
     Route: 048
  17. CALONAL [Suspect]
     Indication: HEADACHE
     Dosage: NOTE: SINGLE USE.
     Route: 048
  18. ONON [Suspect]
     Indication: ASTHMA
     Route: 048
     Dates: end: 20081004
  19. ONON [Suspect]
     Route: 048
  20. DECADRON [Suspect]
     Indication: PREMEDICATION
     Dosage: ROUTE: INTRAVENOUS (NOT OTHERWISE SPECIFIED).
     Route: 050
     Dates: start: 20070329, end: 20081002
  21. LENDORMIN [Suspect]
     Route: 048
     Dates: start: 20070511, end: 20081004
  22. LENDORMIN [Suspect]
     Route: 048
     Dates: start: 20080101, end: 20081210
  23. LOXONIN [Suspect]
     Dosage: FORM: ORAL FORMULATION (NOT OTHERWISE SPECIFIED). NOTE: SINGLE USE.
     Route: 048
     Dates: start: 20070713, end: 20090207
  24. DEPAS [Suspect]
     Dosage: NOTE: SINGLE USE.
     Route: 048
     Dates: start: 20070811, end: 20080117
  25. TRYPTANOL [Suspect]
     Indication: DEPRESSION
     Route: 048
     Dates: start: 20080111, end: 20081004
  26. TRYPTANOL [Suspect]
     Route: 048
     Dates: end: 20090805
  27. DESYREL [Concomitant]
     Route: 048
     Dates: end: 20070614
  28. DESYREL [Concomitant]
     Route: 048
  29. ROHYPNOL [Concomitant]
     Dosage: NOTE: SINGLE USE.
     Route: 048
     Dates: end: 20070510
  30. ROHYPNOL [Concomitant]
     Dosage: NOTE: SINGLE USE
     Route: 048
  31. RIVOTRIL [Concomitant]
     Route: 048
     Dates: start: 20070531, end: 20070614
  32. PARIET [Concomitant]
     Route: 048
     Dates: start: 20070831, end: 20090505
  33. CIPROXAN [Concomitant]
     Route: 048
     Dates: start: 20070405, end: 20070413
  34. FLOMAX [Concomitant]
     Route: 048
     Dates: start: 20080925, end: 20090404
  35. INFLUENZA VACCINE [Concomitant]
     Dosage: DRUG: INFLUENZA HA VACCINE
     Route: 042
     Dates: start: 20081114, end: 20091022
  36. LENDORMIN [Concomitant]
     Dosage: DRUG: LENDORMIN D
     Route: 048
     Dates: start: 20081211, end: 20090714

REACTIONS (41)
  - ABDOMINAL DISTENSION [None]
  - ALOPECIA [None]
  - CHEST DISCOMFORT [None]
  - COUGH [None]
  - DECREASED APPETITE [None]
  - DEPRESSION [None]
  - DIARRHOEA [None]
  - DIZZINESS [None]
  - DYSGEUSIA [None]
  - ENTEROCOLITIS [None]
  - EPISTAXIS [None]
  - EYELIDS PRURITUS [None]
  - GASTROENTERITIS [None]
  - HAEMATOCRIT DECREASED [None]
  - HAEMOGLOBIN DECREASED [None]
  - HERPES VIRUS INFECTION [None]
  - HORDEOLUM [None]
  - INFECTED EPIDERMAL CYST [None]
  - INTERVERTEBRAL DISC PROTRUSION [None]
  - IRRITABLE BOWEL SYNDROME [None]
  - LACRIMATION INCREASED [None]
  - MALAISE [None]
  - MUSCLE SPASMS [None]
  - NAIL DISORDER [None]
  - NASOPHARYNGITIS [None]
  - NAUSEA [None]
  - NEUTROPHIL COUNT DECREASED [None]
  - OCULAR HYPERAEMIA [None]
  - ORAL HERPES [None]
  - PAIN IN EXTREMITY [None]
  - PAIN OF SKIN [None]
  - PARONYCHIA [None]
  - PHLEBITIS [None]
  - RASH [None]
  - RED BLOOD CELL COUNT DECREASED [None]
  - SOMNOLENCE [None]
  - STOMATITIS [None]
  - VOMITING [None]
  - WEIGHT INCREASED [None]
  - WHITE BLOOD CELL COUNT DECREASED [None]
  - WOUND [None]
